FAERS Safety Report 5822472-8 (Version None)
Quarter: 2008Q3

REPORT INFORMATION
  Report Type: 
  Country: None (occurrence: None)
  Receive Date: 20080725
  Receipt Date: 20080201
  Transmission Date: 20090109
  Serious: No
  Sender: FDA-Public Use
  Company Number: US-AMGEN-KDL264219

PATIENT
  Sex: Female
  Weight: 76.7 kg

DRUGS (10)
  1. PROCRIT [Suspect]
     Indication: MYELODYSPLASTIC SYNDROME
     Dates: start: 20050101
  2. MIRALAX [Concomitant]
  3. MS CONTIN [Concomitant]
  4. ACETAMINOPHEN W/ CODEINE [Concomitant]
  5. VALIUM [Concomitant]
     Route: 048
  6. ZOLOFT [Concomitant]
     Route: 048
  7. ASPIRIN [Concomitant]
     Route: 048
  8. NEXIUM [Concomitant]
     Route: 048
     Dates: start: 20060101
  9. VITAMIN B-12 [Concomitant]
  10. FISH OIL [Concomitant]

REACTIONS (2)
  - ELECTROLYTE DEPLETION [None]
  - HEART RATE IRREGULAR [None]
